FAERS Safety Report 5279821-1 (Version None)
Quarter: 2007Q1

REPORT INFORMATION
  Report Type: 
  Country: None (occurrence: None)
  Receive Date: 20061212
  Receipt Date: 20050630
  Transmission Date: 20070707
  Serious: Yes (Other)
  Sender: FDA-Public Use
  Company Number: 2005UW09866

PATIENT
  Sex: Male

DRUGS (1)
  1. RHINOCORT AQUA [Suspect]
     Indication: HYPERSENSITIVITY
     Dosage: 32 UG I N
     Route: 055

REACTIONS (2)
  - HYPOAESTHESIA [None]
  - INCORRECT ROUTE OF DRUG ADMINISTRATION [None]
